FAERS Safety Report 10741160 (Version 2)
Quarter: 2015Q1

REPORT INFORMATION
  Report Type: Spontaneous
  Country: JP (occurrence: JP)
  Receive Date: 20150127
  Receipt Date: 20150217
  Transmission Date: 20150721
  Serious: Yes (Hospitalization, Other)
  Sender: FDA-Public Use
  Company Number: JP-PFIZER INC-2015031655

PATIENT
  Age: 78 Year
  Sex: Male

DRUGS (3)
  1. ATENOLOL. [Suspect]
     Active Substance: ATENOLOL
     Dosage: 12.5 MG, DAILY
     Route: 048
  2. AMLODIN [Suspect]
     Active Substance: AMLODIPINE BESYLATE
     Dosage: 5 MG, DAILY
     Route: 048
  3. DISOPYRAMIDE [Suspect]
     Active Substance: DISOPYRAMIDE
     Dosage: 150 MG, DAILY
     Route: 048

REACTIONS (6)
  - Malaise [Unknown]
  - Chills [Unknown]
  - Hypotension [Unknown]
  - Bradycardia [Unknown]
  - Pyrexia [Unknown]
  - Dysstasia [Unknown]
